FAERS Safety Report 21044233 (Version 2)
Quarter: 2022Q3

REPORT INFORMATION
  Report Type: Spontaneous
  Country: CO (occurrence: CO)
  Receive Date: 20220705
  Receipt Date: 20220928
  Transmission Date: 20221027
  Serious: Yes (Hospitalization, Other)
  Sender: FDA-Public Use
  Company Number: CO-AMGEN-COLSP2022087130

PATIENT
  Age: 65 Year
  Sex: Male
  Weight: 54 kg

DRUGS (16)
  1. MVASI [Suspect]
     Active Substance: BEVACIZUMAB-AWWB
     Indication: Rectal cancer stage III
     Dosage: 100 MILLIGRAM
     Route: 042
     Dates: start: 20220308, end: 2022
  2. MVASI [Suspect]
     Active Substance: BEVACIZUMAB-AWWB
     Dosage: 100 MILLIGRAM
     Route: 042
     Dates: start: 2022
  3. LEUCOVORIN CALCIUM [Concomitant]
     Active Substance: LEUCOVORIN CALCIUM
     Indication: Rectal cancer stage III
     Dosage: 50 MILLIGRAM/MILILITER
     Route: 042
     Dates: start: 20220308
  4. LEUCOVORIN CALCIUM [Concomitant]
     Active Substance: LEUCOVORIN CALCIUM
     Dosage: 10 MILLIGRAM/MILILITER
     Route: 042
     Dates: start: 20220308
  5. FLUOROURACIL [Concomitant]
     Active Substance: FLUOROURACIL
     Indication: Rectal cancer stage III
     Dosage: 50 MILLIGRAM/MILILITER
     Dates: start: 20220308
  6. FOSAPREPITANT [Concomitant]
     Active Substance: FOSAPREPITANT
     Indication: Rectal cancer stage III
     Dosage: 150 MILLIGRAM, QD
     Route: 042
     Dates: start: 20220308
  7. IRINOTECAN [Concomitant]
     Active Substance: IRINOTECAN
     Indication: Rectal cancer stage III
     Dosage: 20 MILLIGRAM/MILILITER
     Route: 042
     Dates: start: 20220308
  8. ONDANSETRON [Concomitant]
     Active Substance: ONDANSETRON
     Indication: Rectal cancer stage III
     Dosage: 8 MILLIGRAM/4 MILILITER
     Dates: start: 20220308
  9. FLUOROURACIL\LEUCOVORIN CALCIUM\OXALIPLATIN [Concomitant]
     Active Substance: FLUOROURACIL\LEUCOVORIN CALCIUM\OXALIPLATIN
  10. ATROPINE SULFATE [Concomitant]
     Active Substance: ATROPINE SULFATE
     Indication: Rectal cancer
     Dosage: 1 MILLIGRAM PER MILLILITE, EVERY 1 DAY(S) FOR 2 DAY(S)
     Route: 030
     Dates: start: 20220308
  11. PALONOSETRON [Concomitant]
     Active Substance: PALONOSETRON
     Indication: Rectal cancer
     Dosage: 0.25MG/5ML (0.05MG/ML) SOL INJ
     Route: 042
     Dates: start: 20220308
  12. DEXAMETHASONE PHOSPHATE [Concomitant]
     Active Substance: DEXAMETHASONE PHOSPHATE
     Indication: Rectal cancer
     Dosage: 8MG/2ML SOL INY AMP X 2ML
     Route: 042
     Dates: start: 20220308
  13. Hioscina n butilbromuro [Concomitant]
     Dosage: UNK UNK, Q8H
     Route: 048
  14. ESOMEPRAZOLE [Concomitant]
     Active Substance: ESOMEPRAZOLE
  15. TAPENTADOL [Concomitant]
     Active Substance: TAPENTADOL
     Dosage: UNK UNK, Q12H
     Route: 048
  16. ACETAMINOPHEN [Concomitant]
     Active Substance: ACETAMINOPHEN

REACTIONS (2)
  - Intestinal anastomosis complication [Recovered/Resolved]
  - Flatulence [Not Recovered/Not Resolved]

NARRATIVE: CASE EVENT DATE: 20220508
